FAERS Safety Report 17657393 (Version 2)
Quarter: 2020Q2

REPORT INFORMATION
  Report Type: Spontaneous
  Country: IT (occurrence: IT)
  Receive Date: 20200410
  Receipt Date: 20200413
  Transmission Date: 20200713
  Serious: Yes (Other)
  Sender: FDA-Public Use
  Company Number: IT-OTSUKA-2020_009403

PATIENT
  Age: 5 Year
  Sex: Female

DRUGS (10)
  1. ETOPOSIDE. [Suspect]
     Active Substance: ETOPOSIDE
     Indication: NEUROBLASTOMA
     Dosage: SIOPEN NB-HR-01 PROTOCOL; 10 WEEKS OF INDUCTION CHEMOTHERAPY (COJEC SCHEME)
     Route: 065
     Dates: start: 201507
  2. DINUTUXIMAB [Suspect]
     Active Substance: DINUTUXIMAB
     Indication: NEUROBLASTOMA
     Dosage: SIOPEN NB-HR-01 PROTOCOL, SIX COURSES OF ANTI-GD2 ANTIBODY
     Route: 065
     Dates: start: 2016
  3. IRINOTECAN [Suspect]
     Active Substance: IRINOTECAN
     Indication: NEUROBLASTOMA
     Dosage: RESCUE THERAPY; IRINOTECAN FOR FIVE CONSECUTIVE DAYS EVERY 3 WEEKS
     Route: 050
  4. CYCLOPHOSPHAMIDE. [Suspect]
     Active Substance: CYCLOPHOSPHAMIDE
     Indication: NEUROBLASTOMA
     Dosage: SIOPEN NB-HR-01 PROTOCOL; 10 WEEKS OF INDUCTION CHEMOTHERAPY (COJEC SCHEME)
     Route: 065
     Dates: start: 201507
  5. CISPLATIN. [Suspect]
     Active Substance: CISPLATIN
     Indication: NEUROBLASTOMA
     Dosage: SIOPEN NB-HR-01 PROTOCOL; 10 WEEKS OF INDUCTION CHEMOTHERAPY (COJEC SCHEME)
     Route: 065
     Dates: start: 201507
  6. CARBOPLATIN. [Suspect]
     Active Substance: CARBOPLATIN
     Indication: NEUROBLASTOMA
     Dosage: SIOPEN NB-HR-01 PROTOCOL; 10 WEEKS OF INDUCTION CHEMOTHERAPY (COJEC SCHEME)
     Route: 065
     Dates: start: 201507
  7. TEMOZOLOMIDE. [Suspect]
     Active Substance: TEMOZOLOMIDE
     Indication: NEUROBLASTOMA
     Dosage: RESCUE THERAPY; TEMOZOLOMIDE FOR FIVE CONSECUTIVE DAYS EVERY 3 WEEKS
     Route: 065
  8. MELPHALAN. [Suspect]
     Active Substance: MELPHALAN
     Indication: STEM CELL TRANSPLANT
     Dosage: SIOPEN NB-HR-01 PROTOCOL
     Route: 065
     Dates: start: 2016
  9. BUSULFAN. [Suspect]
     Active Substance: BUSULFAN
     Indication: STEM CELL TRANSPLANT
     Dosage: SIOPEN NB-HR-01 PROTOCOL
     Route: 065
     Dates: start: 2016
  10. VINCRISTINE [Suspect]
     Active Substance: VINCRISTINE
     Indication: NEUROBLASTOMA
     Dosage: SIOPEN NB-HR-01 PROTOCOL; 10 WEEKS OF INDUCTION CHEMOTHERAPY (COJEC SCHEME)
     Route: 065
     Dates: start: 201507

REACTIONS (3)
  - Bone marrow toxicity [Unknown]
  - Fungaemia [Unknown]
  - Device related infection [Unknown]

NARRATIVE: CASE EVENT DATE: 201811
